FAERS Safety Report 13067937 (Version 1)
Quarter: 2016Q4

REPORT INFORMATION
  Report Type: Spontaneous
  Country: US (occurrence: US)
  Receive Date: 20161227
  Receipt Date: 20161227
  Transmission Date: 20170207
  Serious: No
  Sender: FDA-Public Use
  Company Number: None

PATIENT
  Age: 55 Year
  Sex: Female

DRUGS (1)
  1. HUMIRA [Suspect]
     Active Substance: ADALIMUMAB
     Indication: POLYARTHRITIS
     Route: 058
     Dates: start: 20160718

REACTIONS (6)
  - Rash [None]
  - Infection [None]
  - Scab [None]
  - Gastric ulcer [None]
  - Psoriasis [None]
  - Skin ulcer [None]

NARRATIVE: CASE EVENT DATE: 20161220
